FAERS Safety Report 5286041-3 (Version None)
Quarter: 2007Q1

REPORT INFORMATION
  Report Type: 
  Country: None (occurrence: None)
  Receive Date: 20070329
  Receipt Date: 20070313
  Transmission Date: 20070707
  Serious: Yes (Other)
  Sender: FDA-Public Use
  Company Number: DSA_61454_2007

PATIENT
  Age: 11 Year
  Sex: Female

DRUGS (1)
  1. DIASTAT [Suspect]
     Indication: CONVULSION

REACTIONS (2)
  - CONVULSION [None]
  - DEVICE FAILURE [None]
